FAERS Safety Report 6549632-5 (Version None)
Quarter: 2010Q1

REPORT INFORMATION
  Report Type: 
  Country: None (occurrence: None)
  Receive Date: 20100125
  Receipt Date: 20100119
  Transmission Date: 20100710
  Serious: Yes (Life-Threatening, Disabling)
  Sender: FDA-Public Use
  Company Number: CA-ASTRAZENECA-2010SE01001

PATIENT
  Age: 700 Month
  Sex: Male
  Weight: 113.9 kg

DRUGS (12)
  1. CRESTOR [Suspect]
     Indication: HYPERCHOLESTEROLAEMIA
     Route: 048
     Dates: start: 20090701, end: 20091101
  2. SEROQUEL [Concomitant]
     Indication: DEPRESSION
     Route: 048
     Dates: start: 20050101
  3. CLOBAZAM [Concomitant]
     Indication: EPILEPSY
     Route: 048
     Dates: start: 19950101
  4. DILANTIN [Concomitant]
     Indication: EPILEPSY
     Route: 048
     Dates: start: 19590101
  5. DILANTIN [Concomitant]
     Route: 050
     Dates: start: 19590101
  6. ELTROXIN [Concomitant]
     Indication: THYROID DISORDER
     Route: 048
     Dates: start: 20040101
  7. EXTRA STRENGHT TYLENOL [Concomitant]
     Indication: HEADACHE
     Route: 048
     Dates: start: 20040101
  8. FOLIC ACID [Concomitant]
     Indication: VITAMIN SUPPLEMENTATION
     Route: 048
     Dates: start: 20040101
  9. GLUCOSAMINE [Concomitant]
     Indication: ARTHRITIS
     Route: 048
     Dates: start: 20020101
  10. MIRTAZITNE [Concomitant]
     Indication: DEPRESSION
     Route: 048
     Dates: start: 20091201
  11. TEGRETOL [Concomitant]
     Indication: EPILEPSY
     Route: 048
     Dates: start: 19980101
  12. VITAMIN B-12 [Concomitant]
     Indication: VITAMIN SUPPLEMENTATION
     Route: 048
     Dates: start: 20040101

REACTIONS (5)
  - DRUG INTOLERANCE [None]
  - FATIGUE [None]
  - GAMMA-GLUTAMYLTRANSFERASE INCREASED [None]
  - HEPATOTOXICITY [None]
  - HYPERSOMNIA [None]
